FAERS Safety Report 20601371 (Version 1)
Quarter: 2022Q1

REPORT INFORMATION
  Report Type: Spontaneous
  Country: JP (occurrence: JP)
  Receive Date: 20220316
  Receipt Date: 20220316
  Transmission Date: 20220423
  Serious: Yes (Hospitalization, Other)
  Sender: FDA-Public Use
  Company Number: JP-STRIDES ARCOLAB LIMITED-2022SP002543

PATIENT
  Age: 54 Year
  Sex: Female

DRUGS (9)
  1. METHOTREXATE [Suspect]
     Active Substance: METHOTREXATE
     Indication: Rheumatoid arthritis
     Dosage: UNK
     Route: 065
     Dates: start: 2003, end: 2005
  2. AZATHIOPRINE [Suspect]
     Active Substance: AZATHIOPRINE
     Indication: Interstitial lung disease
     Dosage: UNK
     Route: 065
     Dates: end: 201907
  3. PREDNISOLONE [Suspect]
     Active Substance: PREDNISOLONE
     Indication: Systemic lupus erythematosus
     Dosage: UNK
     Route: 065
     Dates: start: 1988
  4. TACROLIMUS [Suspect]
     Active Substance: TACROLIMUS
     Indication: Rheumatoid arthritis
     Dosage: UNK
     Route: 065
  5. ADALIMUMAB [Suspect]
     Active Substance: ADALIMUMAB
     Indication: Interstitial lung disease
     Dosage: UNK
     Route: 065
     Dates: start: 2009, end: 2010
  6. CYCLOSPORINE [Suspect]
     Active Substance: CYCLOSPORINE
     Indication: Interstitial lung disease
     Dosage: UNK
     Route: 065
     Dates: start: 2005
  7. CYCLOSPORINE [Suspect]
     Active Substance: CYCLOSPORINE
     Dosage: UNK
     Route: 065
     Dates: start: 2011, end: 2018
  8. MYCOPHENOLATE MOFETIL [Suspect]
     Active Substance: MYCOPHENOLATE MOFETIL
     Indication: Interstitial lung disease
     Dosage: 1000 MILLIGRAM, PER DAY
     Route: 048
     Dates: start: 2019, end: 2020
  9. SULFASALAZINE [Concomitant]
     Active Substance: SULFASALAZINE
     Indication: Rheumatoid arthritis
     Dosage: UNK
     Route: 065
     Dates: start: 2003, end: 2005

REACTIONS (5)
  - Diffuse large B-cell lymphoma [Recovered/Resolved]
  - Epstein-Barr virus associated lymphoma [Recovered/Resolved]
  - Central nervous system lymphoma [Recovered/Resolved]
  - Interstitial lung disease [Not Recovered/Not Resolved]
  - Nocardiosis [Unknown]

NARRATIVE: CASE EVENT DATE: 20050101
